FAERS Safety Report 8540868-0 (Version None)
Quarter: 2012Q3

REPORT INFORMATION
  Report Type: 
  Country: None (occurrence: None)
  Receive Date: 20120726
  Receipt Date: 20120724
  Transmission Date: 20120928
  Serious: Yes (Hospitalization)
  Sender: FDA-Public Use
  Company Number: US-PFIZER INC-2012178872

PATIENT
  Sex: Female
  Weight: 72.562 kg

DRUGS (2)
  1. LISINOPRIL [Suspect]
     Indication: HYPERTENSION
     Dosage: UNK
     Dates: end: 20120101
  2. AROMASIN [Suspect]
     Indication: NEOPLASM MALIGNANT
     Dosage: UNK

REACTIONS (2)
  - MUSCLE STRAIN [None]
  - COUGH [None]
